FAERS Safety Report 5900174-7 (Version None)
Quarter: 2008Q3

REPORT INFORMATION
  Report Type: 
  Country: None (occurrence: None)
  Receive Date: 20080924
  Receipt Date: 20080909
  Transmission Date: 20090109
  Serious: Yes (Hospitalization)
  Sender: FDA-Public Use
  Company Number: 2008AL010624

PATIENT
  Age: 55 Year
  Sex: Male

DRUGS (1)
  1. IBUPROFEN ORAL SUSPENSION [Suspect]
     Indication: ARTHROSCOPY
     Dosage: 400 MG; TID
     Dates: start: 20070327

REACTIONS (4)
  - COMPARTMENT SYNDROME [None]
  - DISCOMFORT [None]
  - HAEMATOMA [None]
  - PAIN IN EXTREMITY [None]
